FAERS Safety Report 9106087 (Version 1)
Quarter: 2013Q1

REPORT INFORMATION
  Report Type: Spontaneous
  Country: US (occurrence: US)
  Receive Date: 20130220
  Receipt Date: 20130220
  Transmission Date: 20140127
  Serious: Yes (Other)
  Sender: FDA-Public Use
  Company Number: US-PFIZER INC-2013062850

PATIENT
  Age: 66 Year
  Sex: Male
  Weight: 178.23 kg

DRUGS (18)
  1. LYRICA [Suspect]
     Indication: NEUROPATHY PERIPHERAL
     Dosage: 75 MG, 2X/DAY
     Route: 048
  2. LYRICA [Suspect]
     Dosage: 75 MG, 2X/DAY
     Route: 048
  3. ASPIRIN [Concomitant]
     Dosage: 325 MG, 2X/DAY
  4. BUSPAR [Concomitant]
     Dosage: 15 MG, 2X/DAY
  5. COLCRYS [Concomitant]
     Dosage: 0.6 MG, 2X/DAY
  6. DIOVAN [Concomitant]
     Dosage: 160 MG, 1X/DAY
  7. LASIX [Concomitant]
     Dosage: 40 MG, 1X/DAY
  8. LOPRESSOR [Concomitant]
     Dosage: 25 MG, 2X/DAY
  9. METHADONE [Concomitant]
     Indication: PAIN
     Dosage: 10 MG, UNK
  10. NITROGLYCERIN [Concomitant]
     Dosage: 0.4 MG, AS NEEDED
  11. HUMULIN R U-500 [Concomitant]
     Dosage: UNK
  12. OXYCODONE [Concomitant]
     Dosage: UNK, 2X/DAY
  13. DEXILANT [Concomitant]
     Dosage: 60 MG TABLET, 1X/DAY
  14. ULTRAM [Concomitant]
     Dosage: 50 MG, AS NEEDED
  15. ZANAFLEX [Concomitant]
     Dosage: 4 MG, 2X/DAY
  16. ANTARA [Concomitant]
     Dosage: 130 MG, 1X/DAY
  17. LIPITOR [Concomitant]
     Dosage: 40 MG, 1X/DAY
  18. VITAMIN D [Concomitant]
     Dosage: 1000 IU, 1X/DAY

REACTIONS (3)
  - Renal disorder [Unknown]
  - Pain [Unknown]
  - Pain in extremity [Unknown]
